FAERS Safety Report 9839138 (Version 2)
Quarter: 2014Q3

REPORT INFORMATION
  Report Type: Spontaneous
  Country: US (occurrence: US)
  Receive Date: 20140123
  Receipt Date: 20140807
  Transmission Date: 20150326
  Serious: Yes (Hospitalization, Other)
  Sender: FDA-Public Use
  Company Number: US-009507513-1401USA010120

PATIENT
  Sex: Female
  Weight: 66.67 kg

DRUGS (2)
  1. NUVARING [Suspect]
     Active Substance: ETHINYL ESTRADIOL\ETONOGESTREL
     Indication: ANAEMIA
  2. NUVARING [Suspect]
     Active Substance: ETHINYL ESTRADIOL\ETONOGESTREL
     Indication: MULTIPLE SCLEROSIS
     Dosage: UNK
     Route: 067
     Dates: end: 20120525

REACTIONS (7)
  - Knee operation [Unknown]
  - Deep vein thrombosis [Unknown]
  - Dysfunctional uterine bleeding [Unknown]
  - Off label use [Unknown]
  - Pulmonary embolism [Unknown]
  - Appendicectomy [Unknown]
  - Depression [Unknown]

NARRATIVE: CASE EVENT DATE: 20120525
